FAERS Safety Report 19821520 (Version 1)
Quarter: 2021Q3

REPORT INFORMATION
  Report Type: Spontaneous
  Country: US (occurrence: US)
  Receive Date: 20210909
  Receipt Date: 20210909
  Transmission Date: 20211014
  Serious: Yes (Life-Threatening)
  Sender: FDA-Public Use
  Company Number: None

PATIENT
  Sex: Female
  Weight: 56.7 kg

DRUGS (12)
  1. LYSINOPRIL HCL 10 MG/12.5MG [Concomitant]
     Active Substance: HYDROCHLOROTHIAZIDE\LISINOPRIL
  2. OMEPRAZOLE. [Concomitant]
     Active Substance: OMEPRAZOLE
  3. MECLIZINE [Suspect]
     Active Substance: MECLIZINE HYDROCHLORIDE
     Indication: DIZZINESS
     Route: 048
     Dates: start: 20210727, end: 20210730
  4. ASPIRIN. [Concomitant]
     Active Substance: ASPIRIN
  5. DICLOFENAC [Concomitant]
     Active Substance: DICLOFENAC
  6. IBUPROFEN. [Concomitant]
     Active Substance: IBUPROFEN
  7. VITAMINS [Concomitant]
     Active Substance: VITAMINS
  8. OXYBUTYNIN ER 5MG TABLETS [Suspect]
     Active Substance: OXYBUTYNIN
     Indication: POLLAKIURIA
     Dosage: ?          QUANTITY:12.5 MG MILLIGRAM(S);?
     Route: 048
     Dates: start: 20210727, end: 20210730
  9. GENTEAL MILD [Concomitant]
     Active Substance: HYPROMELLOSE 2910 (4000 MPA.S)
  10. METAMUCIL [Concomitant]
     Active Substance: PLANTAGO SEED
  11. SENNA [Concomitant]
     Active Substance: SENNA LEAF\SENNOSIDES\SENNOSIDES A AND B
  12. VITAMIN D [Concomitant]
     Active Substance: VITAMIN D NOS

REACTIONS (16)
  - Dysphagia [None]
  - Pruritus [None]
  - Eating disorder [None]
  - Fatigue [None]
  - Dyspnoea [None]
  - Hiccups [None]
  - Chest discomfort [None]
  - Dysphonia [None]
  - Headache [None]
  - Confusional state [None]
  - Dizziness [None]
  - Dry mouth [None]
  - Asthenia [None]
  - Throat tightness [None]
  - Vomiting [None]
  - Pain [None]
